FAERS Safety Report 19577119 (Version 1)
Quarter: 2021Q3

REPORT INFORMATION
  Report Type: Spontaneous
  Country: FR (occurrence: FR)
  Receive Date: 20210719
  Receipt Date: 20210719
  Transmission Date: 20211014
  Serious: Yes (Hospitalization, Other)
  Sender: FDA-Public Use
  Company Number: FR-LUPIN PHARMACEUTICALS INC.-2021-12039

PATIENT
  Age: 68 Year
  Sex: Male

DRUGS (3)
  1. HYDROCORTISONE. [Suspect]
     Active Substance: HYDROCORTISONE
     Indication: HAEMOLYTIC ANAEMIA
     Dosage: 60 MILLIGRAM DAILY
     Route: 065
  2. IBRUTINIB [Suspect]
     Active Substance: IBRUTINIB
     Dosage: 420 MILLIGRAM DAILY (RESTARTED)
     Route: 065
  3. IBRUTINIB [Suspect]
     Active Substance: IBRUTINIB
     Indication: CHRONIC LYMPHOCYTIC LEUKAEMIA
     Dosage: 420 MILLIGRAM DAILY
     Route: 065

REACTIONS (3)
  - Cerebral aspergillosis [Recovered/Resolved]
  - Brain oedema [Recovered/Resolved]
  - Brain abscess [Recovered/Resolved]
